FAERS Safety Report 17631920 (Version 3)
Quarter: 2020Q2

REPORT INFORMATION
  Report Type: Spontaneous
  Country: AU (occurrence: AU)
  Receive Date: 20200406
  Receipt Date: 20200427
  Transmission Date: 20200713
  Serious: Yes (Hospitalization)
  Sender: FDA-Public Use
  Company Number: AU-JNJFOC-20200336053

PATIENT
  Age: 45 Year
  Sex: Female

DRUGS (10)
  1. INVEGA SUSTENNA [Suspect]
     Active Substance: PALIPERIDONE PALMITATE
     Indication: SCHIZOPHRENIA
     Route: 030
  2. INVEGA SUSTENNA [Suspect]
     Active Substance: PALIPERIDONE PALMITATE
     Route: 030
     Dates: start: 20190703
  3. INVEGA TRINZA [Suspect]
     Active Substance: PALIPERIDONE PALMITATE
     Indication: SCHIZOAFFECTIVE DISORDER
     Route: 030
     Dates: end: 20190516
  4. INVEGA TRINZA [Suspect]
     Active Substance: PALIPERIDONE PALMITATE
  5. INVEGA TRINZA [Suspect]
     Active Substance: PALIPERIDONE PALMITATE
  6. CLOZAPINE. [Suspect]
     Active Substance: CLOZAPINE
     Indication: MALAISE
  7. SODIUM VALPROATE [Concomitant]
     Active Substance: VALPROATE SODIUM
     Indication: PRODUCT USED FOR UNKNOWN INDICATION
     Route: 065
  8. INVEGA SUSTENNA [Suspect]
     Active Substance: PALIPERIDONE PALMITATE
     Route: 030
     Dates: start: 20190731
  9. CLOZAPINE. [Suspect]
     Active Substance: CLOZAPINE
     Indication: MANIA
     Route: 065
  10. LITHIUM. [Concomitant]
     Active Substance: LITHIUM
     Indication: PRODUCT USED FOR UNKNOWN INDICATION
     Route: 065

REACTIONS (10)
  - Mania [Unknown]
  - Drug ineffective [Unknown]
  - Fear of injection [Unknown]
  - Product use in unapproved indication [Unknown]
  - Tremor [Unknown]
  - Aggression [Unknown]
  - Inappropriate schedule of product administration [Unknown]
  - Myocarditis [Unknown]
  - Delirium [Unknown]
  - Off label use [Unknown]
